FAERS Safety Report 13831938 (Version 1)
Quarter: 2017Q3

REPORT INFORMATION
  Report Type: Spontaneous
  Country: US (occurrence: US)
  Receive Date: 20170803
  Receipt Date: 20170803
  Transmission Date: 20171127
  Serious: No
  Sender: FDA-Public Use
  Company Number: US-ROCHE-675710

PATIENT
  Age: 78 Year
  Sex: Female
  Weight: 58.1 kg

DRUGS (2)
  1. BONIVA [Suspect]
     Active Substance: IBANDRONATE SODIUM
     Indication: OSTEOPOROSIS
     Route: 048
  2. BONIVA [Suspect]
     Active Substance: IBANDRONATE SODIUM
     Route: 048
     Dates: start: 200909, end: 200912

REACTIONS (11)
  - Tongue disorder [Unknown]
  - Swollen tongue [Unknown]
  - Insomnia [Unknown]
  - Mouth swelling [Unknown]
  - Lip disorder [Not Recovered/Not Resolved]
  - Ulcer [Unknown]
  - Oral discomfort [Unknown]
  - Tongue geographic [Unknown]
  - Pain in jaw [Unknown]
  - Oral candidiasis [Unknown]
  - Burning mouth syndrome [Unknown]

NARRATIVE: CASE EVENT DATE: 20080227
